FAERS Safety Report 25653379 (Version 1)
Quarter: 2025Q3

REPORT INFORMATION
  Report Type: Spontaneous
  Country: US (occurrence: US)
  Receive Date: 20250807
  Receipt Date: 20250807
  Transmission Date: 20251020
  Serious: No
  Sender: IPSEN BIOPHARMACEUTICALS, INC.
  Company Number: US-IPSEN Group, Research and Development-2025-18961

PATIENT
  Age: 43 Year
  Sex: Female

DRUGS (2)
  1. DYSPORT [Suspect]
     Active Substance: ABOBOTULINUMTOXINA
     Indication: Skin cosmetic procedure
  2. POLYLACTIDE, L- [Suspect]
     Active Substance: POLYLACTIDE, L-
     Indication: Skin cosmetic procedure

REACTIONS (1)
  - Pancreas transplant [Unknown]

NARRATIVE: CASE EVENT DATE: 20241001
